FAERS Safety Report 21637315 (Version 1)
Quarter: 2022Q4

REPORT INFORMATION
  Report Type: Report from Study
  Country: US (occurrence: US)
  Receive Date: 20221124
  Receipt Date: 20221124
  Transmission Date: 20230113
  Serious: No
  Sender: FDA-Public Use
  Company Number: US-ABBVIE-22K-163-4485769-00

PATIENT
  Age: 44 Year
  Sex: Male

DRUGS (5)
  1. HUMIRA [Suspect]
     Active Substance: ADALIMUMAB
     Indication: Crohn^s disease
     Dosage: FORM STRENGTH 40 MILLIGRAM?LAST ADMINISTRATION DATE WAS 2022
     Route: 058
     Dates: start: 20210902
  2. HUMIRA [Suspect]
     Active Substance: ADALIMUMAB
     Dosage: FORM STRENGTH 40 MG
     Route: 058
     Dates: start: 2022
  3. PFIZER-BIONTECH COVID-19 VACCINE [Concomitant]
     Active Substance: TOZINAMERAN
     Indication: COVID-19 immunisation
     Dosage: ONE IN ONCE
     Route: 030
  4. UCERIS [Concomitant]
     Active Substance: BUDESONIDE
     Indication: Product used for unknown indication
  5. TETANUS TOXOIDS [Concomitant]
     Active Substance: TETANUS TOXOIDS
     Indication: Product used for unknown indication

REACTIONS (31)
  - Blood pressure increased [Not Recovered/Not Resolved]
  - Hypertension [Unknown]
  - Gastrointestinal sounds abnormal [Unknown]
  - Eye pain [Unknown]
  - Dysphonia [Recovered/Resolved]
  - Tooth extraction [Unknown]
  - Upper-airway cough syndrome [Recovered/Resolved]
  - COVID-19 [Unknown]
  - Night sweats [Unknown]
  - Insomnia [Unknown]
  - Haematochezia [Unknown]
  - Laboratory test abnormal [Unknown]
  - Abdominal discomfort [Unknown]
  - Tinea cruris [Unknown]
  - Headache [Recovered/Resolved]
  - Arthropod bite [Unknown]
  - Oedema peripheral [Not Recovered/Not Resolved]
  - Back pain [Unknown]
  - Acne [Unknown]
  - Endodontic procedure [Unknown]
  - Constipation [Unknown]
  - Tooth fracture [Unknown]
  - Peripheral swelling [Recovered/Resolved]
  - Fatigue [Unknown]
  - Inappropriate schedule of product administration [Unknown]
  - Fatigue [Unknown]
  - Small intestine ulcer [Unknown]
  - Superficial injury of eye [Unknown]
  - Impaired healing [Unknown]
  - Symptom recurrence [Unknown]
  - Gastrointestinal oedema [Unknown]

NARRATIVE: CASE EVENT DATE: 20220629
